FAERS Safety Report 12619917 (Version 1)
Quarter: 2016Q3

REPORT INFORMATION
  Report Type: Spontaneous
  Country: TR (occurrence: TR)
  Receive Date: 20160803
  Receipt Date: 20160803
  Transmission Date: 20161109
  Serious: Yes (Hospitalization, Other)
  Sender: FDA-Public Use
  Company Number: TR-APOTEX-2016AP010120

PATIENT
  Age: 73 Year
  Sex: Male

DRUGS (2)
  1. AS-CLODIP FILM TABLET [Suspect]
     Active Substance: CLOPIDOGREL BISULFATE
     Indication: ANTICOAGULANT THERAPY
     Dosage: UNK UNK, UNKNOWN
     Route: 065
  2. ACETYLSALICYLIC ACID [Suspect]
     Active Substance: ASPIRIN
     Indication: ANTICOAGULANT THERAPY
     Dosage: UNK, UNKNOWN
     Route: 065

REACTIONS (3)
  - Blue toe syndrome [Recovering/Resolving]
  - Chronic kidney disease [Unknown]
  - Fat embolism [Recovering/Resolving]
